FAERS Safety Report 4576603-0 (Version None)
Quarter: 2005Q1

REPORT INFORMATION
  Report Type: 
  Country: None (occurrence: None)
  Receive Date: 20050127
  Receipt Date: 20041004
  Transmission Date: 20050727
  Serious: No
  Sender: FDA-Public Use
  Company Number: USA041080070

PATIENT
  Age: 10 Year
  Sex: Male
  Weight: 26 kg

DRUGS (3)
  1. STRATTERA [Suspect]
     Dosage: 25 MG DAY
     Dates: start: 20040901
  2. RHINOCORT [Concomitant]
  3. CLARINEX [Concomitant]

REACTIONS (4)
  - DIZZINESS [None]
  - HEADACHE [None]
  - INCREASED APPETITE [None]
  - PERSONALITY CHANGE [None]
